FAERS Safety Report 9666089 (Version 1)
Quarter: 2013Q4

REPORT INFORMATION
  Report Type: Spontaneous
  Country: GB (occurrence: GB)
  Receive Date: 20131103
  Receipt Date: 20131103
  Transmission Date: 20140711
  Serious: Yes (Other)
  Sender: FDA-Public Use
  Company Number: GB-009507513-1310GBR012904

PATIENT
  Age: 77 Year
  Sex: Male
  Weight: 128 kg

DRUGS (4)
  1. JANUVIA [Suspect]
     Dosage: 100 MG, QD
     Route: 048
     Dates: start: 20130925, end: 20131010
  2. BEZAFIBRATE [Concomitant]
  3. METFORMIN [Concomitant]
  4. VALSARTAN [Concomitant]

REACTIONS (3)
  - Lethargy [Recovered/Resolved]
  - Constipation [Recovered/Resolved]
  - Pain in extremity [Recovered/Resolved]
